FAERS Safety Report 5062018-8 (Version None)
Quarter: 2006Q3

REPORT INFORMATION
  Report Type: 
  Country: None (occurrence: None)
  Receive Date: 20060726
  Receipt Date: 20060717
  Transmission Date: 20061208
  Serious: Yes (Hospitalization)
  Sender: FDA-Public Use
  Company Number: 2006CG01232

PATIENT
  Age: 0 Year
  Sex: Male
  Weight: 2 kg

DRUGS (9)
  1. TENORMIN [Suspect]
     Route: 064
  2. OMEPRAZOLE [Concomitant]
     Route: 064
     Dates: end: 20060201
  3. LEXOMIL [Concomitant]
     Route: 064
  4. ASPIRIN [Concomitant]
     Route: 064
  5. ATORVASTATIN CALCIUM [Concomitant]
     Route: 064
     Dates: end: 20060201
  6. ATORVASTATIN CALCIUM [Concomitant]
     Route: 064
     Dates: start: 20060201
  7. NIQUITIN [Concomitant]
     Route: 064
  8. PLAVIX [Concomitant]
     Route: 064
     Dates: end: 20060401
  9. COVERSYL [Concomitant]
     Route: 064
     Dates: end: 20060201

REACTIONS (8)
  - CAESAREAN SECTION [None]
  - DRUG EXPOSURE DURING PREGNANCY [None]
  - FOETAL GROWTH RETARDATION [None]
  - HYPOGLYCAEMIA NEONATAL [None]
  - PLACENTAL DISORDER [None]
  - PREMATURE LABOUR [None]
  - SINGLE UMBILICAL ARTERY [None]
  - THROMBOCYTOPENIA NEONATAL [None]
